FAERS Safety Report 20236548 (Version 4)
Quarter: 2022Q3

REPORT INFORMATION
  Report Type: Report from Study
  Country: US (occurrence: US)
  Receive Date: 20211228
  Receipt Date: 20220701
  Transmission Date: 20221027
  Serious: Yes (Other)
  Sender: FDA-Public Use
  Company Number: US-NOVARTISTESTPH-NVSC2021US294097

PATIENT
  Sex: Male

DRUGS (2)
  1. ENTRESTO [Suspect]
     Active Substance: SACUBITRIL\VALSARTAN
     Indication: Product used for unknown indication
     Dosage: 1 DOSAGE FORM, BID
     Route: 048
     Dates: start: 202107
  2. ENTRESTO [Suspect]
     Active Substance: SACUBITRIL\VALSARTAN
     Dosage: UNK (INCREASED DOSE)
     Route: 065

REACTIONS (7)
  - Cardiac dysfunction [Unknown]
  - Hypoacusis [Unknown]
  - Throat clearing [Unknown]
  - Memory impairment [Unknown]
  - Weight increased [Unknown]
  - Fatigue [Unknown]
  - Product dose omission issue [Unknown]
